FAERS Safety Report 16420085 (Version 2)
Quarter: 2019Q2

REPORT INFORMATION
  Report Type: Report from Study
  Country: KR (occurrence: KR)
  Receive Date: 20190612
  Receipt Date: 20190620
  Transmission Date: 20190711
  Serious: Yes (Death)
  Sender: FDA-Public Use
  Company Number: KR-CLINIGEN GROUP PLC/ CLINIGEN HEALTHCARE LTD-KR-CLGN-19-00350

PATIENT
  Age: 29 Month
  Sex: Female

DRUGS (1)
  1. FOSCAVIR [Suspect]
     Active Substance: FOSCARNET SODIUM
     Indication: JUVENILE CHRONIC MYELOMONOCYTIC LEUKAEMIA
     Route: 042
     Dates: end: 20180501

REACTIONS (5)
  - Off label use [Unknown]
  - Juvenile chronic myelomonocytic leukaemia [Fatal]
  - Disease progression [Fatal]
  - Hepatic failure [Fatal]
  - Gastrointestinal haemorrhage [Fatal]
